FAERS Safety Report 9477739 (Version 4)
Quarter: 2013Q4

REPORT INFORMATION
  Report Type: Spontaneous
  Country: AU (occurrence: AU)
  Receive Date: 20130827
  Receipt Date: 20131031
  Transmission Date: 20140711
  Serious: Yes (Hospitalization)
  Sender: FDA-Public Use
  Company Number: AU-ASTRAZENECA-2013SE64599

PATIENT
  Age: 80 Year
  Sex: Male

DRUGS (6)
  1. ATACAND PLUS [Suspect]
     Dosage: 16+12.5 MG, ONE DOSE UNSPECIFIED DAILY
     Route: 048
  2. ATACAND [Suspect]
     Dosage: DAILY
     Route: 048
  3. ASPIRIN [Suspect]
     Route: 065
  4. TEGRETOL CR [Suspect]
     Route: 065
  5. EPILIM [Suspect]
     Route: 048
  6. SIMVASTATIN [Concomitant]

REACTIONS (4)
  - Haemorrhage intracranial [Recovering/Resolving]
  - Fall [Recovering/Resolving]
  - Hyponatraemia [Recovering/Resolving]
  - Dizziness [Recovering/Resolving]
